FAERS Safety Report 24721453 (Version 2)
Quarter: 2024Q4

REPORT INFORMATION
  Report Type: Spontaneous
  Country: JP (occurrence: JP)
  Receive Date: 20241211
  Receipt Date: 20241213
  Transmission Date: 20250115
  Serious: Yes (Other)
  Sender: Haleon PLC
  Company Number: JP-HALEON-2213774

PATIENT
  Age: 8 Year
  Sex: Female

DRUGS (3)
  1. TERBINAFINE [Suspect]
     Active Substance: TERBINAFINE\TERBINAFINE HYDROCHLORIDE
     Indication: Body tinea
     Dosage: TIME INTERVAL: AS NECESSARY
     Route: 061
  2. LULICONAZOLE [Suspect]
     Active Substance: LULICONAZOLE
     Indication: Body tinea
     Route: 061
  3. ITRACONAZOLE [Suspect]
     Active Substance: ITRACONAZOLE
     Indication: Body tinea
     Dosage: 60MG
     Route: 048

REACTIONS (2)
  - Hepatic function abnormal [Recovered/Resolved]
  - Skin irritation [Recovered/Resolved]
